FAERS Safety Report 6942833-3 (Version None)
Quarter: 2010Q3

REPORT INFORMATION
  Report Type: 
  Country: None (occurrence: None)
  Receive Date: 20100826
  Receipt Date: 20100812
  Transmission Date: 20110219
  Serious: Yes (Death)
  Sender: FDA-Public Use
  Company Number: US-ROCHE-718171

PATIENT
  Sex: Male
  Weight: 104.7 kg

DRUGS (36)
  1. BEVACIZUMAB [Suspect]
     Dosage: DOSING AMMOUNT:1565.0000
     Route: 042
     Dates: start: 20100714, end: 20100714
  2. PEMETREXED [Suspect]
     Dosage: DOSING AMOUNT:300MG/ML
     Route: 042
     Dates: start: 20100714, end: 20100714
  3. LOVASTATIN [Concomitant]
     Route: 048
     Dates: start: 20040501
  4. DOXAZOSIN MESYLATE [Concomitant]
     Dosage: FREQUENCY: 3 TAB BEDTIME.
     Route: 048
     Dates: start: 20080601
  5. CLONAZEPAM [Concomitant]
     Indication: ANXIOLYTIC THERAPY
     Dosage: FREQUENCY: BEDTIME.
     Route: 048
     Dates: start: 20100601
  6. ASPIRIN [Concomitant]
     Indication: ANTICOAGULANT THERAPY
     Route: 048
     Dates: start: 19900101
  7. INDAPAMIDE [Concomitant]
     Indication: HYPERTENSION
     Route: 048
     Dates: start: 19900101
  8. XODOL [Concomitant]
     Dosage: DOSING AMOUNT: 10 MG-300 MG, DATE: 6/28
     Route: 048
  9. DECADRON [Concomitant]
     Route: 048
     Dates: start: 20100713
  10. COMPAZINE [Concomitant]
     Indication: NAUSEA
     Dosage: FREQUENCY: PRN-24-6
     Route: 048
     Dates: start: 20100713
  11. FOLIC ACID [Concomitant]
     Dosage: INDICATION: SUPP.
     Route: 048
     Dates: start: 20100709
  12. OXYCONTIN [Concomitant]
     Indication: PAIN
     Dosage: FREQUENCY: PRN Q/2.
     Route: 048
     Dates: start: 20100709
  13. OXYCONTIN [Concomitant]
     Dosage: FREQUENCY: PRN Q4.
     Route: 048
     Dates: start: 20100709
  14. REQUIP [Concomitant]
     Route: 048
     Dates: start: 20100601
  15. LASIX [Concomitant]
     Indication: FLUID RETENTION
     Route: 048
     Dates: start: 19900101
  16. METOPROLOL [Concomitant]
     Route: 048
     Dates: start: 20100101
  17. ALLOPURINOL [Concomitant]
     Indication: GOUT
     Route: 048
     Dates: start: 20000501
  18. AMIODARONE [Concomitant]
     Indication: ARRHYTHMIA
     Route: 048
     Dates: start: 20080801
  19. RANITIDINE [Concomitant]
     Route: 048
  20. PLAVIX [Concomitant]
     Dosage: INDICATION:ANTI COAGULATION
     Route: 048
     Dates: start: 20080801
  21. ZOLPIDEM [Concomitant]
     Route: 048
     Dates: start: 20100418
  22. BACTRIM DS [Concomitant]
     Dosage: DOSE: 160/620
     Route: 048
     Dates: start: 20100718, end: 20100727
  23. SENOKOT [Concomitant]
     Indication: CONSTIPATION
     Route: 048
     Dates: start: 20100719, end: 20100727
  24. RELISTOR [Concomitant]
     Indication: CONSTIPATION
     Dates: start: 20100719, end: 20100719
  25. ZOFRAN [Concomitant]
     Indication: NAUSEA
     Route: 042
     Dates: start: 20100718, end: 20100728
  26. CLONAZEPAM [Concomitant]
     Route: 048
     Dates: start: 20100718, end: 20100722
  27. VICODIN [Concomitant]
     Indication: PAIN
     Dosage: DOSE: 5/500.
     Route: 048
     Dates: start: 20100718, end: 20100727
  28. SIMVASTATIN [Concomitant]
     Route: 048
     Dates: start: 20100719, end: 20100726
  29. PHENERGAN [Concomitant]
     Indication: NAUSEA
     Dosage: FORM: ORAL AND IV AS NECESSARY.
     Dates: start: 20100720, end: 20100727
  30. DOXAZOSIN MESYLATE [Concomitant]
     Route: 048
     Dates: start: 20100719, end: 20100725
  31. ATIVAN [Concomitant]
     Indication: ANXIETY
     Route: 048
     Dates: start: 20100723, end: 20100727
  32. ROBITUSSIN [Concomitant]
     Indication: COUGH
     Route: 048
     Dates: start: 20100723, end: 20100723
  33. CEPACOL LOZENGES NOS [Concomitant]
     Route: 048
     Dates: start: 20100723, end: 20100723
  34. NITROGLYCERIN [Concomitant]
     Indication: CHEST PAIN
     Route: 060
     Dates: start: 20100721, end: 20100722
  35. PENICILLIN [Concomitant]
     Indication: ANTIBIOTIC THERAPY
     Route: 048
     Dates: start: 20100604, end: 20100717
  36. METAMUCIL-2 [Concomitant]
     Indication: LAXATIVE SUPPORTIVE CARE
     Dates: start: 20100405, end: 20100717

REACTIONS (1)
  - ACUTE RESPIRATORY DISTRESS SYNDROME [None]
